FAERS Safety Report 16535478 (Version 1)
Quarter: 2019Q3

REPORT INFORMATION
  Report Type: Spontaneous
  Country: US (occurrence: US)
  Receive Date: 20190705
  Receipt Date: 20190705
  Transmission Date: 20191004
  Serious: No
  Sender: FDA-Public Use
  Company Number: US-PFIZER INC-2019271357

PATIENT
  Sex: Male

DRUGS (2)
  1. GABAPENTIN. [Suspect]
     Active Substance: GABAPENTIN
     Indication: NEUROPATHY PERIPHERAL
     Dosage: 900 MG, DAILY (300MG IN THE AM, 600MG AT NIGHT)
  2. GABAPENTIN. [Suspect]
     Active Substance: GABAPENTIN
     Indication: TYPE 2 DIABETES MELLITUS
     Dosage: 600 MG, DAILY (300MG IN THE AM AND 300MG AT NIGHT)

REACTIONS (4)
  - Middle insomnia [Unknown]
  - Product use in unapproved indication [Unknown]
  - Headache [Unknown]
  - Off label use [Unknown]
